FAERS Safety Report 13958434 (Version 3)
Quarter: 2018Q2

REPORT INFORMATION
  Report Type: Spontaneous
  Country: US (occurrence: US)
  Receive Date: 20170912
  Receipt Date: 20180508
  Transmission Date: 20180711
  Serious: Yes (Other)
  Sender: FDA-Public Use
  Company Number: US-PFIZER INC-2017389061

PATIENT
  Age: 52 Year
  Sex: Male
  Weight: 73.94 kg

DRUGS (2)
  1. CARVEDILOL. [Concomitant]
     Active Substance: CARVEDILOL
     Indication: CARDIAC DISORDER
     Dosage: 25 MG, 2X/DAY(25MG CAPSULE ONE IN THE MORNING AND ONE AT NIGHT)
     Route: 048
     Dates: start: 20140220
  2. LYRICA [Suspect]
     Active Substance: PREGABALIN
     Indication: DIABETIC NEUROPATHY
     Dosage: 150 MG, UNK

REACTIONS (5)
  - Blindness [Unknown]
  - Pain [Unknown]
  - Dizziness [Unknown]
  - Intentional product use issue [Unknown]
  - Irritability [Unknown]

NARRATIVE: CASE EVENT DATE: 20170904
